FAERS Safety Report 12054698 (Version 3)
Quarter: 2018Q1

REPORT INFORMATION
  Report Type: Spontaneous
  Country: US (occurrence: US)
  Receive Date: 20160209
  Receipt Date: 20180126
  Transmission Date: 20180508
  Serious: No
  Sender: FDA-Public Use
  Company Number: US-ABBVIE-15P-163-1464241-00

PATIENT

DRUGS (3)
  1. HUMIRA [Suspect]
     Active Substance: ADALIMUMAB
     Indication: CROHN^S DISEASE
     Route: 058
     Dates: start: 2008
  2. HUMIRA [Suspect]
     Active Substance: ADALIMUMAB
     Indication: HIDRADENITIS
  3. HUMIRA [Suspect]
     Active Substance: ADALIMUMAB
     Indication: PSORIATIC ARTHROPATHY

REACTIONS (16)
  - Drug effect incomplete [Unknown]
  - Pain [Unknown]
  - Hidradenitis [Unknown]
  - Ear disorder [Unknown]
  - Anxiety [Unknown]
  - Pain [Unknown]
  - Migraine [Unknown]
  - Depression [Unknown]
  - Asthenia [Unknown]
  - Fatigue [Unknown]
  - Fear [Unknown]
  - Insomnia [Unknown]
  - Hidradenitis [Unknown]
  - Furuncle [Unknown]
  - Decreased activity [Unknown]
  - Abscess drainage [Unknown]

NARRATIVE: CASE EVENT DATE: 2015
